FAERS Safety Report 17432498 (Version 1)
Quarter: 2020Q1

REPORT INFORMATION
  Report Type: Spontaneous
  Country: FR (occurrence: FR)
  Receive Date: 20200218
  Receipt Date: 20200218
  Transmission Date: 20200409
  Serious: Yes (Hospitalization)
  Sender: FDA-Public Use
  Company Number: FR-TEVA-2020-FR-1187515

PATIENT
  Age: 21 Year
  Sex: Female

DRUGS (3)
  1. PRAZEPAM [Suspect]
     Active Substance: PRAZEPAM
     Indication: INTENTIONAL OVERDOSE
     Dosage: 400 MILLIGRAM
     Route: 048
     Dates: start: 20200127, end: 20200127
  2. ALPRAZOLAM. [Suspect]
     Active Substance: ALPRAZOLAM
     Indication: INTENTIONAL OVERDOSE
     Dosage: 8.75 MILLGRAM
     Route: 048
     Dates: start: 20200127, end: 20200127
  3. TERALITHE [Suspect]
     Active Substance: LITHIUM CARBONATE
     Indication: INTENTIONAL OVERDOSE
     Dosage: 4 GRAM
     Route: 048
     Dates: start: 20200127, end: 20200127

REACTIONS (1)
  - Antipsychotic drug level increased [Recovered/Resolved]

NARRATIVE: CASE EVENT DATE: 20200127
